FAERS Safety Report 12632953 (Version 2)
Quarter: 2016Q3

REPORT INFORMATION
  Report Type: Spontaneous
  Country: US (occurrence: US)
  Receive Date: 20160808
  Receipt Date: 20160808
  Transmission Date: 20161109
  Serious: No
  Sender: FDA-Public Use
  Company Number: US-BEH-2016057748

PATIENT
  Age: 61 Year
  Sex: Male
  Weight: 94 kg

DRUGS (21)
  1. HIZENTRA [Suspect]
     Active Substance: HUMAN IMMUNOGLOBULIN G
  2. CLONIDINE. [Concomitant]
     Active Substance: CLONIDINE
  3. BACLOFEN. [Concomitant]
     Active Substance: BACLOFEN
  4. NEURONTIN [Concomitant]
     Active Substance: GABAPENTIN
  5. PROVENTIL [Concomitant]
     Active Substance: ALBUTEROL
  6. AMANTADINE [Concomitant]
     Active Substance: AMANTADINE
  7. CYANOCOBALAMIN. [Concomitant]
     Active Substance: CYANOCOBALAMIN
  8. L-M-X [Concomitant]
  9. VITAMIN D3 [Concomitant]
     Active Substance: CHOLECALCIFEROL
  10. LASIX [Concomitant]
     Active Substance: FUROSEMIDE
  11. HIZENTRA [Suspect]
     Active Substance: HUMAN IMMUNOGLOBULIN G
     Indication: MULTIPLE SCLEROSIS
     Route: 058
  12. LIDOCAINE/PRILOCAINE [Concomitant]
     Active Substance: LIDOCAINE\PRILOCAINE
  13. HIZENTRA [Suspect]
     Active Substance: HUMAN IMMUNOGLOBULIN G
     Indication: IMMUNODEFICIENCY COMMON VARIABLE
     Route: 058
  14. DIPHENHYDRAMINE. [Concomitant]
     Active Substance: DIPHENHYDRAMINE
  15. OMNARIS [Concomitant]
     Active Substance: CICLESONIDE
  16. NIACIN. [Concomitant]
     Active Substance: NIACIN
  17. TYSABRI [Concomitant]
     Active Substance: NATALIZUMAB
  18. KLONOPIN [Concomitant]
     Active Substance: CLONAZEPAM
  19. XYZAL [Concomitant]
     Active Substance: LEVOCETIRIZINE DIHYDROCHLORIDE
  20. EPIPEN [Concomitant]
     Active Substance: EPINEPHRINE
  21. AMITRIPTYLINE [Concomitant]
     Active Substance: AMITRIPTYLINE

REACTIONS (2)
  - Malaise [Unknown]
  - Cough [Unknown]

NARRATIVE: CASE EVENT DATE: 20151202
